FAERS Safety Report 16885443 (Version 1)
Quarter: 2019Q4

REPORT INFORMATION
  Report Type: Spontaneous
  Country: FR (occurrence: FR)
  Receive Date: 20191004
  Receipt Date: 20191004
  Transmission Date: 20200122
  Serious: Yes (Other)
  Sender: FDA-Public Use
  Company Number: FR-MYLANLABS-2019M1091962

PATIENT
  Age: 16 Year
  Sex: Male

DRUGS (3)
  1. TRAMADOL. [Suspect]
     Active Substance: TRAMADOL
     Dosage: 12 DF, UNK
     Route: 048
  2. TRAMADOL. [Suspect]
     Active Substance: TRAMADOL
     Indication: PROCEDURAL PAIN
     Dosage: 100 MG, UNK
     Route: 048
  3. TRAMADOL HYDROCHLORIDE. [Suspect]
     Active Substance: TRAMADOL HYDROCHLORIDE
     Indication: PROCEDURAL PAIN
     Dosage: 50 MG, UNK

REACTIONS (14)
  - Fatigue [Recovered/Resolved]
  - Intentional product misuse [Recovered/Resolved]
  - Loss of personal independence in daily activities [Unknown]
  - Bone pain [Unknown]
  - Pruritus [Recovered/Resolved]
  - Drug ineffective [Unknown]
  - Intentional overdose [Recovered/Resolved]
  - Reversed hot-cold sensation [Recovered/Resolved]
  - Tic [Recovered/Resolved]
  - Urinary retention [Recovered/Resolved]
  - Drug tolerance [Unknown]
  - Drug dependence [Recovered/Resolved with Sequelae]
  - Euphoric mood [Unknown]
  - Withdrawal syndrome [Recovered/Resolved]
